FAERS Safety Report 6015635-2 (Version None)
Quarter: 2008Q4

REPORT INFORMATION
  Report Type: 
  Country: None (occurrence: None)
  Receive Date: 20081222
  Receipt Date: 20081217
  Transmission Date: 20090506
  Serious: Yes (Life-Threatening, Hospitalization)
  Sender: FDA-Public Use
  Company Number: US-GILEAD-2008-0019534

PATIENT
  Sex: Female

DRUGS (15)
  1. LETAIRIS [Suspect]
     Indication: PULMONARY ARTERIAL HYPERTENSION
     Route: 048
     Dates: start: 20080613
  2. VIAGRA [Concomitant]
  3. LASIX [Concomitant]
  4. LOPRESSOR [Concomitant]
  5. PREDNISONE TAB [Concomitant]
  6. DIGOXIN [Concomitant]
  7. ENOXAPARIN SODIUM [Concomitant]
  8. ZOFRAN [Concomitant]
  9. FOSAMAX [Concomitant]
  10. ACETAMINOPHEN [Concomitant]
  11. PERCOCET [Concomitant]
  12. OMEPRAZOLE [Concomitant]
  13. FE [Concomitant]
  14. ASPIRIN [Concomitant]
  15. CA [Concomitant]

REACTIONS (1)
  - PNEUMONIA [None]
